FAERS Safety Report 21522936 (Version 1)
Quarter: 2022Q4

REPORT INFORMATION
  Report Type: Spontaneous
  Country: CA (occurrence: CA)
  Receive Date: 20221029
  Receipt Date: 20221029
  Transmission Date: 20230112
  Serious: Yes (Hospitalization, Other)
  Sender: FDA-Public Use
  Company Number: CA-UNITED THERAPEUTICS-UNT-2022-025208

PATIENT
  Sex: Female

DRUGS (2)
  1. REMODULIN [Suspect]
     Active Substance: TREPROSTINIL
     Indication: Pulmonary arterial hypertension
     Dosage: UNK, CONTINUING
     Route: 058
     Dates: start: 20220621
  2. REMODULIN [Suspect]
     Active Substance: TREPROSTINIL
     Dosage: 0.073 ?G/KG, CONTINUING
     Route: 058
     Dates: start: 2022

REACTIONS (1)
  - Pneumonia [Recovering/Resolving]

NARRATIVE: CASE EVENT DATE: 20220101
